FAERS Safety Report 5387045-2 (Version None)
Quarter: 2007Q3

REPORT INFORMATION
  Report Type: 
  Country: None (occurrence: None)
  Receive Date: 20070713
  Receipt Date: 20070704
  Transmission Date: 20080115
  Serious: Yes (Hospitalization)
  Sender: FDA-Public Use
  Company Number: GB-ABBOTT-07P-167-0373804-00

PATIENT
  Sex: Male
  Weight: 83 kg

DRUGS (4)
  1. HUMIRA [Suspect]
     Indication: SERONEGATIVE ARTHRITIS
     Route: 058
     Dates: start: 20040114
  2. METHOTREXATE [Concomitant]
     Indication: DRUG USE FOR UNKNOWN INDICATION
  3. DICLOFENAC POTASSIUM [Concomitant]
     Indication: DRUG USE FOR UNKNOWN INDICATION
  4. LANSOPRAZOLE [Concomitant]
     Indication: DRUG USE FOR UNKNOWN INDICATION

REACTIONS (8)
  - ARTHRALGIA [None]
  - BACK INJURY [None]
  - BACK PAIN [None]
  - FALL [None]
  - HYPOAESTHESIA [None]
  - INGROWING NAIL [None]
  - JOINT INJURY [None]
  - OEDEMA PERIPHERAL [None]
